FAERS Safety Report 23970868 (Version 1)
Quarter: 2024Q2

REPORT INFORMATION
  Report Type: Spontaneous
  Country: US (occurrence: None)
  Receive Date: 20240612
  Receipt Date: 20240612
  Transmission Date: 20240716
  Serious: Yes (Hospitalization)
  Sender: FDA-Public Use
  Company Number: None

PATIENT
  Age: 50 Year
  Sex: Female

DRUGS (4)
  1. AMBRISENTAN [Suspect]
     Active Substance: AMBRISENTAN
     Indication: Pulmonary arterial hypertension
     Dosage: 10MG QD ORAL?
     Route: 048
     Dates: start: 20190401
  2. AMBRISENTAN [Suspect]
     Active Substance: AMBRISENTAN
     Indication: Heritable pulmonary arterial hypertension
  3. SILDENAFIL [Suspect]
     Active Substance: SILDENAFIL
  4. FLOLAN [Suspect]
     Active Substance: EPOPROSTENOL SODIUM

REACTIONS (1)
  - Endometrial adenocarcinoma [None]

NARRATIVE: CASE EVENT DATE: 20240523
